FAERS Safety Report 9768880 (Version 1)
Quarter: 2013Q3

REPORT INFORMATION
  Report Type: Spontaneous
  Country: US (occurrence: None)
  Receive Date: 20130903
  Receipt Date: 20130903
  Transmission Date: 20140515
  Serious: Yes (Hospitalization)
  Sender: FDA-Public Use
  Company Number: 89271

PATIENT
  Age: 62 Year
  Sex: Male

DRUGS (1)
  1. CISPLATIN [Suspect]
     Indication: METASTATIC NEOPLASM
     Route: 042
     Dates: start: 20090416, end: 20090616

REACTIONS (4)
  - Atrioventricular block complete [None]
  - Bundle branch block right [None]
  - Heart rate increased [None]
  - Atrioventricular block second degree [None]
